FAERS Safety Report 12698599 (Version 1)
Quarter: 2016Q3

REPORT INFORMATION
  Report Type: Spontaneous
  Country: US (occurrence: US)
  Receive Date: 20160830
  Receipt Date: 20160830
  Transmission Date: 20161109
  Serious: Yes (Other)
  Sender: FDA-Public Use
  Company Number: US-RECKITT BENCKISER HEALTHCARE INT LIMITED-RB-89768-2016

PATIENT
  Age: 80 Year
  Sex: Female

DRUGS (1)
  1. MUCINEX MAXIMUM STRENGTH [Suspect]
     Active Substance: GUAIFENESIN
     Indication: PRODUCT USED FOR UNKNOWN INDICATION
     Dosage: UNK, BID (TOOK 2 DOSES, ONE AT 6 PM AND ANOTHER A FEW MINUTES BEFORE REPORTING)
     Route: 065
     Dates: start: 20160823

REACTIONS (2)
  - Incorrect drug administration duration [Unknown]
  - No adverse event [Unknown]

NARRATIVE: CASE EVENT DATE: 20160823
